FAERS Safety Report 9729544 (Version 3)
Quarter: 2015Q3

REPORT INFORMATION
  Report Type: Spontaneous
  Country: US (occurrence: US)
  Receive Date: 20131204
  Receipt Date: 20150804
  Transmission Date: 20151125
  Serious: No
  Sender: FDA-Public Use
  Company Number: US-GILEAD-2009-0022006

PATIENT
  Age: 19 Year
  Sex: Female
  Weight: 70.31 kg

DRUGS (7)
  1. PREDNISONE. [Concomitant]
     Active Substance: PREDNISONE
  2. LETAIRIS [Suspect]
     Active Substance: AMBRISENTAN
     Indication: PULMONARY ARTERIAL HYPERTENSION
     Route: 048
     Dates: start: 20090320
  3. FOLIC ACID. [Concomitant]
     Active Substance: FOLIC ACID
  4. REVATIO [Concomitant]
     Active Substance: SILDENAFIL CITRATE
  5. NAPROXEN. [Concomitant]
     Active Substance: NAPROXEN
  6. METHOTREXATE [Concomitant]
     Active Substance: METHOTREXATE
  7. PREVACID [Concomitant]
     Active Substance: LANSOPRAZOLE

REACTIONS (2)
  - Arthralgia [Unknown]
  - Headache [Unknown]
